FAERS Safety Report 20769815 (Version 2)
Quarter: 2022Q4

REPORT INFORMATION
  Report Type: Report from Study
  Country: KR (occurrence: KR)
  Receive Date: 20220429
  Receipt Date: 20221010
  Transmission Date: 20230113
  Serious: Yes (Hospitalization)
  Sender: FDA-Public Use
  Company Number: KR-TAKEDA- 2022TUS027445

PATIENT
  Age: 39 Year
  Sex: Female
  Weight: 49 kg

DRUGS (34)
  1. VEDOLIZUMAB [Suspect]
     Active Substance: VEDOLIZUMAB
     Indication: Crohn^s disease
     Dosage: 300 MILLIGRAM
     Route: 042
     Dates: start: 20201209, end: 20201209
  2. VEDOLIZUMAB [Suspect]
     Active Substance: VEDOLIZUMAB
     Dosage: 300 MILLIGRAM
     Route: 042
     Dates: start: 20201223, end: 20201223
  3. VEDOLIZUMAB [Suspect]
     Active Substance: VEDOLIZUMAB
     Dosage: 300 MILLIGRAM, QD
     Route: 042
     Dates: start: 20210120, end: 20210120
  4. VEDOLIZUMAB [Suspect]
     Active Substance: VEDOLIZUMAB
     Dosage: 300 MILLIGRAM, QD
     Route: 042
     Dates: start: 20210217, end: 20210217
  5. VEDOLIZUMAB [Suspect]
     Active Substance: VEDOLIZUMAB
     Dosage: 300 MILLIGRAM, QD
     Route: 042
     Dates: start: 20210414, end: 20210414
  6. VEDOLIZUMAB [Suspect]
     Active Substance: VEDOLIZUMAB
     Dosage: 300 MILLIGRAM, QD
     Route: 042
     Dates: start: 20210609, end: 20210609
  7. VEDOLIZUMAB [Suspect]
     Active Substance: VEDOLIZUMAB
     Dosage: 300 MILLIGRAM, QD
     Route: 042
     Dates: start: 20210804, end: 20210804
  8. VEDOLIZUMAB [Suspect]
     Active Substance: VEDOLIZUMAB
     Dosage: 300 MILLIGRAM, QD
     Route: 042
     Dates: start: 20210929, end: 20210929
  9. VEDOLIZUMAB [Suspect]
     Active Substance: VEDOLIZUMAB
     Dosage: 300 MILLIGRAM, QD
     Route: 042
     Dates: start: 20211125, end: 20211125
  10. VEDOLIZUMAB [Suspect]
     Active Substance: VEDOLIZUMAB
     Dosage: 300 MILLIGRAM, QD
     Route: 042
     Dates: start: 20220120
  11. ACTINAMIDE [Concomitant]
     Indication: Vitamin supplementation
     Dosage: 1 MILLIGRAM, Q8WEEKS
     Route: 030
     Dates: start: 20171122
  12. METRYNAL [Concomitant]
     Indication: Anal fistula
     Dosage: 500 MILLIGRAM, TID
     Route: 042
     Dates: start: 20220325, end: 20220404
  13. CEFTRIAXONE [Concomitant]
     Active Substance: CEFTRIAXONE
     Indication: Anal fistula
     Dosage: 1100 MILLILITER, QD
     Route: 042
     Dates: start: 20220325, end: 20220404
  14. COMBIFLEX PERI [Concomitant]
     Indication: Anal fistula
     Dosage: 1100 MILLILITER, QD
     Route: 042
     Dates: start: 20220325, end: 20220328
  15. ULTRACET [Concomitant]
     Active Substance: ACETAMINOPHEN\TRAMADOL HYDROCHLORIDE
     Indication: Anal fistula
     Dosage: UNK UNK, BID
     Route: 048
     Dates: start: 20220326, end: 20220407
  16. ENCOVER [Concomitant]
     Indication: Adverse event
     Dosage: 200 MILLILITER, QD
     Route: 048
     Dates: start: 20220327, end: 20220407
  17. ENCOVER [Concomitant]
     Indication: Anal fistula
  18. NORZYME [Concomitant]
     Indication: Anal fistula
     Dosage: 457.7 MILLIGRAM, TID
     Route: 048
     Dates: start: 20220327, end: 20220327
  19. METOCLOPRAMIDE HYDROCHLORIDE [Concomitant]
     Active Substance: METOCLOPRAMIDE HYDROCHLORIDE
     Indication: Anal fistula
     Dosage: 10 MILLIGRAM, QD
     Route: 042
     Dates: start: 20220327, end: 20220327
  20. AMINO ACIDS\DEXTROSE\ELECTROLYTES NOS\SOYBEAN OIL\VITAMINS [Concomitant]
     Active Substance: AMINO ACIDS\DEXTROSE\ELECTROLYTES NOS\SOYBEAN OIL\VITAMINS
     Indication: Anal fistula
     Dosage: 1085 MILLILITER, QD
     Route: 042
     Dates: start: 20220228, end: 20220404
  21. VITAMINS [Concomitant]
     Active Substance: VITAMINS
     Indication: Anal fistula
     Dosage: 5 MILLILITER, QD
     Route: 042
     Dates: start: 20220328, end: 20220404
  22. FURTMAN [Concomitant]
     Indication: Anal fistula
     Dosage: 2 MILLILITER, QD
     Route: 042
     Dates: start: 20220328, end: 20220404
  23. GASTER [Concomitant]
     Active Substance: FAMOTIDINE
     Indication: Adverse event
     Dosage: 20 MILLIGRAM, BID
     Route: 048
     Dates: start: 20220328, end: 20220404
  24. Venoferrum [Concomitant]
     Dosage: 100 MILLIGRAM
     Route: 042
     Dates: start: 20220122
  25. PROFA [Concomitant]
     Indication: Anal fistula
     Dosage: UNK
     Route: 042
     Dates: start: 20220401, end: 20220402
  26. HYDROCORTISONE SODIUM SUCCINATE [Concomitant]
     Active Substance: HYDROCORTISONE SODIUM SUCCINATE
     Indication: Prophylaxis
     Dosage: 100 MILLIGRAM, MONTHLY
     Route: 042
     Dates: start: 20220404
  27. FLASINYL [Concomitant]
     Indication: Anal fistula
     Dosage: 250 MILLIGRAM, TID
     Route: 048
     Dates: start: 20220405
  28. BANAN [Concomitant]
     Active Substance: CEFPODOXIME PROXETIL
     Indication: Anal fistula
     Dosage: 100 MILLIGRAM, BID
     Route: 048
     Dates: start: 20220405
  29. PENTASA [Concomitant]
     Active Substance: MESALAMINE
     Indication: Crohn^s disease
     Dosage: UNK UNK, TID
     Route: 048
     Dates: start: 20170216
  30. AZABIO [Concomitant]
     Indication: Crohn^s disease
     Dosage: 25 MILLIGRAM, QD
     Route: 048
     Dates: start: 20170219
  31. .ALPHA.-TOCOPHEROL ACETATE\ALLANTOIN\LIDOCAINE\PREDNISOLONE [Concomitant]
     Active Substance: .ALPHA.-TOCOPHEROL ACETATE\ALLANTOIN\LIDOCAINE\PREDNISOLONE
     Dosage: UNK
     Route: 054
     Dates: start: 20210217, end: 20210928
  32. .ALPHA.-TOCOPHEROL ACETATE\ALLANTOIN\LIDOCAINE\PREDNISOLONE [Concomitant]
     Active Substance: .ALPHA.-TOCOPHEROL ACETATE\ALLANTOIN\LIDOCAINE\PREDNISOLONE
     Dosage: 4 UNK
     Route: 054
     Dates: start: 20210929
  33. REMICADE [Concomitant]
     Active Substance: INFLIXIMAB
     Indication: Crohn^s disease
     Dosage: 250 MILLIGRAM, MONTHLY
     Route: 042
     Dates: start: 20220404
  34. VITAMIN B12 [Concomitant]
     Active Substance: CYANOCOBALAMIN
     Indication: Anal fistula
     Dosage: UNK

REACTIONS (1)
  - Anal fistula [Recovered/Resolved]

NARRATIVE: CASE EVENT DATE: 20220325
